FAERS Safety Report 11006237 (Version 2)
Quarter: 2016Q2

REPORT INFORMATION
  Report Type: Report from Study
  Country: US (occurrence: US)
  Receive Date: 20150409
  Receipt Date: 20160427
  Transmission Date: 20160815
  Serious: Yes (Hospitalization)
  Sender: FDA-Public Use
  Company Number: US-SA-2014SA048466

PATIENT
  Age: 30 Year
  Sex: Male

DRUGS (3)
  1. AUBAGIO [Suspect]
     Active Substance: TERIFLUNOMIDE
     Indication: MULTIPLE SCLEROSIS
     Route: 048
     Dates: start: 201408, end: 2016
  2. AUBAGIO [Suspect]
     Active Substance: TERIFLUNOMIDE
     Indication: MULTIPLE SCLEROSIS
     Route: 048
     Dates: start: 20140327
  3. AUBAGIO [Suspect]
     Active Substance: TERIFLUNOMIDE
     Indication: MULTIPLE SCLEROSIS
     Route: 048
     Dates: start: 2016

REACTIONS (6)
  - Muscular weakness [Recovering/Resolving]
  - Drug dose omission [Unknown]
  - Headache [Unknown]
  - Multiple sclerosis relapse [Recovered/Resolved]
  - Amnesia [Not Recovered/Not Resolved]
  - Brain neoplasm [Unknown]

NARRATIVE: CASE EVENT DATE: 2015
